FAERS Safety Report 15156391 (Version 1)
Quarter: 2018Q3

REPORT INFORMATION
  Report Type: Spontaneous
  Country: CA (occurrence: CA)
  Receive Date: 20180717
  Receipt Date: 20180717
  Transmission Date: 20181010
  Serious: Yes (Other)
  Sender: FDA-Public Use
  Company Number: CA-ALLERGAN-1835451US

PATIENT
  Age: 58 Year
  Sex: Female

DRUGS (4)
  1. URSO [Suspect]
     Active Substance: URSODIOL
     Indication: BILE OUTPUT ABNORMAL
     Dosage: UNK
     Route: 065
  2. OXYGEN. [Concomitant]
     Active Substance: OXYGEN
  3. PANTOLOC [Concomitant]
     Active Substance: PANTOPRAZOLE SODIUM
  4. CARVEDILOL. [Concomitant]
     Active Substance: CARVEDILOL

REACTIONS (2)
  - Dyspnoea [Unknown]
  - Off label use [Unknown]
